FAERS Safety Report 21516558 (Version 1)
Quarter: 2022Q4

REPORT INFORMATION
  Report Type: Spontaneous
  Country: US (occurrence: US)
  Receive Date: 20221027
  Receipt Date: 20221027
  Transmission Date: 20230113
  Serious: Yes (Hospitalization)
  Sender: FDA-Public Use
  Company Number: US-PRINSTON PHARMACEUTICAL INC.-2022PRN00386

PATIENT
  Age: 23 Year
  Sex: Male
  Weight: 75 kg

DRUGS (5)
  1. ACETAMINOPHEN [Suspect]
     Active Substance: ACETAMINOPHEN
     Dosage: ^EXTENDED RELEASE;^ APPROXIMATELY 188.5 G
     Route: 048
  2. NAPROXEN [Concomitant]
     Active Substance: NAPROXEN
     Route: 065
  3. IBUPROFEN [Concomitant]
     Active Substance: IBUPROFEN
     Route: 065
  4. HYDROCODONE [Concomitant]
     Active Substance: HYDROCODONE
     Route: 065
  5. LORATADINE [Concomitant]
     Active Substance: LORATADINE
     Route: 065

REACTIONS (5)
  - Overdose [Recovered/Resolved]
  - Agitation [Recovered/Resolved]
  - Laryngospasm [Recovered/Resolved]
  - Bezoar [Recovered/Resolved]
  - Hepatic failure [Recovered/Resolved]
